FAERS Safety Report 10608885 (Version 1)
Quarter: 2014Q4

REPORT INFORMATION
  Report Type: Spontaneous
  Country: US (occurrence: US)
  Receive Date: 20141125
  Receipt Date: 20141125
  Transmission Date: 20150529
  Serious: Yes (Hospitalization, Other)
  Sender: FDA-Public Use
  Company Number: US-GILEAD-2014-0124393

PATIENT
  Age: 75 Year
  Sex: Female

DRUGS (20)
  1. PROAIR HFA [Concomitant]
     Active Substance: ALBUTEROL SULFATE
  2. IRON [Concomitant]
     Active Substance: IRON
  3. JANUMET [Concomitant]
     Active Substance: METFORMIN HYDROCHLORIDE\SITAGLIPTIN PHOSPHATE
  4. NORTRIPTYLINE [Concomitant]
     Active Substance: NORTRIPTYLINE
  5. ALBUTEROL                          /00139501/ [Concomitant]
     Active Substance: ALBUTEROL
  6. BUMETANIDE. [Concomitant]
     Active Substance: BUMETANIDE
  7. OMEPRAZOLE. [Concomitant]
     Active Substance: OMEPRAZOLE
  8. ADCIRCA [Concomitant]
     Active Substance: TADALAFIL
  9. LOVASTATIN. [Concomitant]
     Active Substance: LOVASTATIN
  10. CARVEDILOL. [Concomitant]
     Active Substance: CARVEDILOL
  11. LETAIRIS [Suspect]
     Active Substance: AMBRISENTAN
     Indication: PULMONARY ARTERIAL HYPERTENSION
     Dosage: 10 MG, QD
     Route: 065
     Dates: start: 20120204
  12. GABAPENTIN. [Concomitant]
     Active Substance: GABAPENTIN
  13. TYVASO [Concomitant]
     Active Substance: TREPROSTINIL
  14. ALDACTONE [Concomitant]
     Active Substance: SPIRONOLACTONE
  15. LYRICA [Concomitant]
     Active Substance: PREGABALIN
  16. CYMBALTA [Concomitant]
     Active Substance: DULOXETINE HYDROCHLORIDE
  17. PROZAC [Concomitant]
     Active Substance: FLUOXETINE HYDROCHLORIDE
  18. LEVOTHYROXINE [Concomitant]
     Active Substance: LEVOTHYROXINE
  19. COUMADIN [Concomitant]
     Active Substance: WARFARIN SODIUM
  20. PENICILLIN                         /00000901/ [Concomitant]
     Active Substance: PENICILLIN

REACTIONS (2)
  - Anaemia [Recovered/Resolved]
  - Gastrointestinal haemorrhage [Recovered/Resolved]

NARRATIVE: CASE EVENT DATE: 20141105
